FAERS Safety Report 25920297 (Version 1)
Quarter: 2025Q4

REPORT INFORMATION
  Report Type: Spontaneous
  Country: US (occurrence: US)
  Receive Date: 20251014
  Receipt Date: 20251014
  Transmission Date: 20260117
  Serious: Yes (Other)
  Sender: ALEXION PHARMACEUTICALS
  Company Number: US-AstraZeneca-CH-00969887A

PATIENT
  Age: 34 Year

DRUGS (2)
  1. LYNPARZA [Suspect]
     Active Substance: OLAPARIB
     Dosage: UNK
     Route: 065
  2. IMFINZI [Suspect]
     Active Substance: DURVALUMAB
     Dosage: UNK
     Route: 065

REACTIONS (15)
  - Cholangiocarcinoma [Unknown]
  - Metastases to liver [Unknown]
  - Abdominal lymphadenopathy [Unknown]
  - Portal vein occlusion [Unknown]
  - Road traffic accident [Unknown]
  - Internal haemorrhage [Unknown]
  - Pneumobilia [Unknown]
  - Anaemia [Unknown]
  - Biliary cyst [Unknown]
  - Abdominal distension [Unknown]
  - Fatigue [Unknown]
  - Dyspnoea [Unknown]
  - Decreased appetite [Unknown]
  - Weight decreased [Unknown]
  - Change of bowel habit [Unknown]

NARRATIVE: CASE EVENT DATE: 20240501
